FAERS Safety Report 9239976 (Version 2)
Quarter: 2013Q3

REPORT INFORMATION
  Report Type: Spontaneous
  Country: US (occurrence: US)
  Receive Date: 20130418
  Receipt Date: 20130807
  Transmission Date: 20140515
  Serious: Yes (Death, Hospitalization)
  Sender: FDA-Public Use
  Company Number: US-GLAXOSMITHKLINE-A1019607A

PATIENT
  Age: 98 Year
  Sex: Female
  Weight: 63.6 kg

DRUGS (7)
  1. ADVAIR [Suspect]
     Indication: CHRONIC OBSTRUCTIVE PULMONARY DISEASE
     Dosage: 1PUFF TWICE PER DAY
     Route: 055
  2. BUDESONIDE [Concomitant]
  3. COUMADIN [Concomitant]
  4. METOPROLOL [Concomitant]
  5. FUROSEMIDE [Concomitant]
  6. FOLIC ACID [Concomitant]
  7. ASPIRIN [Concomitant]

REACTIONS (4)
  - Atrial fibrillation [Fatal]
  - Coronary artery disease [Fatal]
  - Respiratory failure [Fatal]
  - Dyspnoea [Unknown]
